FAERS Safety Report 9764626 (Version 1)
Quarter: 2013Q4

REPORT INFORMATION
  Report Type: Spontaneous
  Country: US (occurrence: None)
  Receive Date: 20131213
  Receipt Date: 20131213
  Transmission Date: 20140711
  Serious: Yes (Other)
  Sender: FDA-Public Use
  Company Number: 2013SA032132

PATIENT
  Age: 16 Year
  Sex: Female

DRUGS (2)
  1. ICY HOT [Suspect]
     Indication: PRODUCT USED FOR UNKNOWN INDICATION
     Route: 061
     Dates: start: 20090130
  2. TYLENOL [Concomitant]

REACTIONS (3)
  - Burns second degree [None]
  - Blister [None]
  - Wound secretion [None]
